FAERS Safety Report 14298070 (Version 2)
Quarter: 2018Q1

REPORT INFORMATION
  Report Type: Spontaneous
  Country: JP (occurrence: JP)
  Receive Date: 20171218
  Receipt Date: 20180125
  Transmission Date: 20180509
  Serious: Yes (Hospitalization, Other)
  Sender: FDA-Public Use
  Company Number: JP-GILEAD-2017-0310400

PATIENT
  Sex: Male

DRUGS (5)
  1. SOVALDI [Suspect]
     Active Substance: SOFOSBUVIR
     Indication: HEPATITIS C
     Dosage: UNK, QD
     Route: 048
     Dates: start: 20171004, end: 20171226
  2. INSULIN [Concomitant]
     Active Substance: INSULIN NOS
  3. REBETOL [Concomitant]
     Active Substance: RIBAVIRIN
     Dosage: 800 MG, UNK
     Dates: start: 20171004, end: 20171226
  4. LUSEFI [Concomitant]
     Active Substance: LUSEOGLIFLOZIN
  5. INSULIN GLARGINE BS FFP [Concomitant]

REACTIONS (1)
  - Myocardial infarction [Recovered/Resolved]

NARRATIVE: CASE EVENT DATE: 20171202
